FAERS Safety Report 21735450 (Version 1)
Quarter: 2022Q4

REPORT INFORMATION
  Report Type: Spontaneous
  Country: US (occurrence: None)
  Receive Date: 20221215
  Receipt Date: 20221215
  Transmission Date: 20230112
  Serious: Yes (Other)
  Sender: FDA-Public Use
  Company Number: None

PATIENT
  Age: 66 Year
  Sex: Female
  Weight: 78.47 kg

DRUGS (10)
  1. PAXLOVID [Suspect]
     Active Substance: NIRMATRELVIR\RITONAVIR
     Indication: COVID-19
     Dosage: FREQUENCY : TWICE A DAY;?
     Route: 048
     Dates: start: 20221119, end: 20221122
  2. ATORVASTATIN [Suspect]
     Active Substance: ATORVASTATIN
  3. PREGABALIN [Concomitant]
     Active Substance: PREGABALIN
  4. DICLOFENAC SODIUM [Concomitant]
     Active Substance: DICLOFENAC SODIUM
  5. PANTOPRAZOLE SODIUM [Concomitant]
     Active Substance: PANTOPRAZOLE SODIUM
  6. TRAZODONE HYDROCHLORIDE [Concomitant]
     Active Substance: TRAZODONE HYDROCHLORIDE
  7. PRAMIPEXOLE DIHYDROCHLORIDE [Concomitant]
     Active Substance: PRAMIPEXOLE DIHYDROCHLORIDE
  8. CLONAZEPAM [Concomitant]
     Active Substance: CLONAZEPAM
  9. TIZANIDINE HYDROCHLORIDE [Concomitant]
     Active Substance: TIZANIDINE HYDROCHLORIDE
  10. ACETAMINOPHEN\OXYCODONE HYDROCHLORIDE [Concomitant]
     Active Substance: ACETAMINOPHEN\OXYCODONE HYDROCHLORIDE

REACTIONS (7)
  - Feeling abnormal [None]
  - Rebound effect [None]
  - COVID-19 [None]
  - Pain [None]
  - Muscle spasms [None]
  - Gait disturbance [None]
  - Complex regional pain syndrome [None]

NARRATIVE: CASE EVENT DATE: 20221101
